FAERS Safety Report 17952772 (Version 2)
Quarter: 2020Q3

REPORT INFORMATION
  Report Type: Spontaneous
  Country: JP (occurrence: JP)
  Receive Date: 20200626
  Receipt Date: 20200709
  Transmission Date: 20201103
  Serious: Yes (Other)
  Sender: FDA-Public Use
  Company Number: JP-AMGEN-JPNSP2020102470

PATIENT
  Age: 5 Decade
  Sex: Female

DRUGS (3)
  1. VECTIBIX [Suspect]
     Active Substance: PANITUMUMAB
     Indication: COLON CANCER
     Dosage: UNK
     Route: 042
     Dates: start: 202002
  2. MINOMYCIN [Concomitant]
     Active Substance: MINOCYCLINE HYDROCHLORIDE
     Dosage: UNK
     Route: 065
  3. MINOMYCIN [Concomitant]
     Active Substance: MINOCYCLINE HYDROCHLORIDE
     Dosage: UNK
     Route: 065

REACTIONS (4)
  - Colon cancer [Unknown]
  - Hepatic function abnormal [Not Recovered/Not Resolved]
  - Disease progression [Unknown]
  - Dermatitis acneiform [Not Recovered/Not Resolved]
